FAERS Safety Report 23871842 (Version 2)
Quarter: 2024Q2

REPORT INFORMATION
  Report Type: Spontaneous
  Country: US (occurrence: US)
  Receive Date: 20240520
  Receipt Date: 20240611
  Transmission Date: 20240715
  Serious: No
  Sender: FDA-Public Use
  Company Number: US-002147023-NVSC2024US105278

PATIENT
  Sex: Male
  Weight: 84 kg

DRUGS (1)
  1. PLUVICTO [Suspect]
     Active Substance: LUTETIUM LU-177 VIPIVOTIDE TETRAXETAN
     Indication: Prostate cancer
     Dosage: UNKC(200 MQI)
     Route: 042
     Dates: start: 20231220, end: 20240517

REACTIONS (3)
  - Ill-defined disorder [Unknown]
  - Hypoaesthesia [Unknown]
  - Anaemia [Unknown]
